FAERS Safety Report 4815703-4 (Version None)
Quarter: 2005Q4

REPORT INFORMATION
  Report Type: 
  Country: None (occurrence: None)
  Receive Date: 20051027
  Receipt Date: 20051012
  Transmission Date: 20060501
  Serious: Yes (Hospitalization)
  Sender: FDA-Public Use
  Company Number: DEU-2005-0001696

PATIENT
  Age: 80 Year
  Sex: Female
  Weight: 67 kg

DRUGS (7)
  1. OXYCODONE HCL [Suspect]
     Indication: BACK PAIN
     Dosage: 40 MG, DAILY, ORAL
     Route: 048
     Dates: start: 20050824, end: 20050921
  2. OXYCODONE HCL [Suspect]
     Indication: BACK PAIN
     Dosage: ORAL
     Route: 048
     Dates: start: 20050824, end: 20050921
  3. SEREVENT [Concomitant]
  4. SANASTHMYL (BECLOMETASONE DIPROPIONATE) [Concomitant]
  5. MOVICOL (SODIUM BICARBONATE, POTASSIUM CHLORIDE, SODIUM CHLORIDE, MACR [Concomitant]
  6. METOCLOPRAMIDE [Concomitant]
  7. VENOSTASIN (THIAMINE HYDROCHLORIDE, HORSE CHESTNUT EXTRACT) [Concomitant]

REACTIONS (2)
  - GASTRITIS HAEMORRHAGIC [None]
  - HYPONATRAEMIA [None]
